FAERS Safety Report 9563956 (Version 2)
Quarter: 2013Q3

REPORT INFORMATION
  Report Type: Report from Study
  Country: BE (occurrence: BE)
  Receive Date: 20130928
  Receipt Date: 20130928
  Transmission Date: 20140515
  Serious: Yes (Other)
  Sender: FDA-Public Use
  Company Number: BE-BAYER-2013-059265

PATIENT
  Sex: Male

DRUGS (5)
  1. NEXAVAR [Suspect]
     Dosage: DAILY DOSE 800 MG
     Dates: start: 20130107, end: 20130219
  2. NEXAVAR [Suspect]
     Dosage: DAILY DOSE 400 MG
     Dates: start: 20130227, end: 2013
  3. NEXAVAR [Suspect]
     Dosage: DAILY DOSE 600 MG
     Dates: start: 2013, end: 2013
  4. NEXAVAR [Suspect]
     Dosage: DAILY DOSE 400 MG
     Dates: start: 2013
  5. NEXAVAR [Suspect]
     Dosage: DAILY DOSE 800 MG
     Dates: start: 2013, end: 20130412

REACTIONS (3)
  - Hepatocellular carcinoma [None]
  - Blister [Recovered/Resolved]
  - Oral mucosal blistering [Recovered/Resolved]
